FAERS Safety Report 9308494 (Version 1)
Quarter: 2013Q2

REPORT INFORMATION
  Report Type: Spontaneous
  Country: US (occurrence: US)
  Receive Date: 20130524
  Receipt Date: 20130524
  Transmission Date: 20140414
  Serious: Yes (Other)
  Sender: FDA-Public Use
  Company Number: US-MERCK-1305USA012256

PATIENT
  Age: 47 Year
  Sex: Male

DRUGS (3)
  1. JANUMET XR [Suspect]
     Indication: DIABETES MELLITUS
     Dosage: 50/1000, ONCE A DAY, TIME OF DAY
     Route: 048
     Dates: end: 20130415
  2. LIPITOR [Concomitant]
     Dosage: UNK
     Dates: end: 20130415
  3. METFORMIN [Concomitant]
     Dosage: UNK

REACTIONS (2)
  - Pancreatitis [Unknown]
  - Inappropriate schedule of drug administration [Unknown]
